FAERS Safety Report 6246907-4 (Version None)
Quarter: 2009Q2

REPORT INFORMATION
  Report Type: 
  Country: None (occurrence: None)
  Receive Date: 20090626
  Receipt Date: 20090617
  Transmission Date: 20091009
  Serious: Yes (Other)
  Sender: FDA-Public Use
  Company Number: US-AMGEN-US352143

PATIENT
  Sex: Female

DRUGS (6)
  1. NEULASTA [Suspect]
     Indication: CHEMOTHERAPY
     Dates: start: 20090424
  2. MOTRIN [Concomitant]
  3. FLEXERIL [Concomitant]
  4. ALLOPURINOL [Concomitant]
  5. PRILOSEC [Concomitant]
  6. TYLENOL (CAPLET) [Concomitant]

REACTIONS (3)
  - BONE PAIN [None]
  - MALAISE [None]
  - THERAPEUTIC RESPONSE DECREASED [None]
